FAERS Safety Report 15687457 (Version 1)
Quarter: 2018Q4

REPORT INFORMATION
  Report Type: Spontaneous
  Country: KE (occurrence: KE)
  Receive Date: 20181205
  Receipt Date: 20181205
  Transmission Date: 20190205
  Serious: Yes (Other)
  Sender: FDA-Public Use
  Company Number: KE-JNJFOC-20181131217

PATIENT

DRUGS (3)
  1. ACETAMINOPHEN. [Suspect]
     Active Substance: ACETAMINOPHEN
     Indication: CHRONIC KIDNEY DISEASE
     Route: 065
  2. INSULIN [Interacting]
     Active Substance: INSULIN NOS
     Indication: CHRONIC KIDNEY DISEASE
     Route: 065
  3. ACETAMINOPHEN. [Suspect]
     Active Substance: ACETAMINOPHEN
     Route: 065

REACTIONS (8)
  - Product selection error [Unknown]
  - Adverse event [Unknown]
  - Drug interaction [Unknown]
  - Off label use [Unknown]
  - Overdose [Unknown]
  - Product use in unapproved indication [Unknown]
  - Underdose [Unknown]
  - Treatment noncompliance [Unknown]
